FAERS Safety Report 9965150 (Version 1)
Quarter: 2014Q1

REPORT INFORMATION
  Report Type: Spontaneous
  Country: US (occurrence: US)
  Receive Date: 20140305
  Receipt Date: 20140305
  Transmission Date: 20141002
  Serious: No
  Sender: FDA-Public Use
  Company Number: US-ABBVIE-13P-163-1128193-00

PATIENT
  Age: 72 Year
  Sex: Male
  Weight: 106.69 kg

DRUGS (12)
  1. HUMIRA [Suspect]
     Indication: PSORIASIS
     Route: 058
     Dates: start: 201205
  2. VITAMIN B12 [Concomitant]
     Indication: VITAMIN SUPPLEMENTATION
  3. LABETALOL [Concomitant]
     Indication: HYPERTENSION
  4. LISINOPRIL [Concomitant]
     Indication: HYPERTENSION
  5. ASPIRIN [Concomitant]
     Indication: PRODUCT USED FOR UNKNOWN INDICATION
  6. HCTZ [Concomitant]
     Indication: HYPERTENSION
  7. LEVOTHYROXINE [Concomitant]
     Indication: HYPOTHYROIDISM
  8. TAMSULOSIN [Concomitant]
     Indication: PRODUCT USED FOR UNKNOWN INDICATION
  9. OMEPRAZOLE [Concomitant]
     Indication: GASTROOESOPHAGEAL REFLUX DISEASE
  10. FLORASTOR [Concomitant]
     Indication: PRODUCT USED FOR UNKNOWN INDICATION
  11. LOVASTATIN [Concomitant]
     Indication: BLOOD CHOLESTEROL INCREASED
  12. SYMBCORT [Concomitant]
     Indication: ASTHMA

REACTIONS (1)
  - Inappropriate schedule of drug administration [Recovered/Resolved]
